FAERS Safety Report 6936681-8 (Version None)
Quarter: 2010Q3

REPORT INFORMATION
  Report Type: 
  Country: None (occurrence: None)
  Receive Date: 20100823
  Receipt Date: 20100818
  Transmission Date: 20110219
  Serious: Yes (Hospitalization)
  Sender: FDA-Public Use
  Company Number: ES-AMGEN-KDC423903

PATIENT
  Sex: Female

DRUGS (4)
  1. PANITUMUMAB [Suspect]
     Indication: COLORECTAL CANCER
     Route: 042
     Dates: start: 20100617, end: 20100702
  2. FOLINIC ACID [Suspect]
     Route: 042
     Dates: start: 20100617, end: 20100702
  3. FLUOROURACIL [Suspect]
     Route: 042
     Dates: start: 20100617, end: 20100702
  4. IRINOTECAN HCL [Suspect]
     Route: 042
     Dates: start: 20100617, end: 20100702

REACTIONS (1)
  - DEVICE RELATED INFECTION [None]
